FAERS Safety Report 4863790-X (Version None)
Quarter: 2005Q4

REPORT INFORMATION
  Report Type: 
  Country: None (occurrence: None)
  Receive Date: 20051222
  Receipt Date: 20050824
  Transmission Date: 20060501
  Serious: No
  Sender: FDA-Public Use
  Company Number: US-GLAXOSMITHKLINE-A0571635A

PATIENT
  Sex: Female

DRUGS (2)
  1. FLONASE [Suspect]
     Indication: SINUSITIS
     Dosage: 2SPR PER DAY
     Route: 045
     Dates: start: 20050823
  2. ZOCOR [Concomitant]

REACTIONS (1)
  - HEADACHE [None]
